FAERS Safety Report 6922193-4 (Version None)
Quarter: 2010Q3

REPORT INFORMATION
  Report Type: 
  Country: None (occurrence: None)
  Receive Date: 20100812
  Receipt Date: 20100804
  Transmission Date: 20110219
  Serious: Yes (Hospitalization)
  Sender: FDA-Public Use
  Company Number: AR-AMGEN-QUU430204

PATIENT
  Sex: Male
  Weight: 180 kg

DRUGS (6)
  1. ENBREL [Suspect]
     Indication: PSORIASIS
     Route: 058
     Dates: start: 20070515, end: 20100101
  2. ENBREL [Suspect]
     Route: 058
     Dates: start: 20100101
  3. ALDACTONE [Concomitant]
     Indication: HYPERTENSION
     Dosage: UNSPECIFIED MG TABLET ON ALTERNATE DAYS
  4. METFORMIN HCL [Concomitant]
     Indication: DIABETES MELLITUS
  5. LOTRIAL [Concomitant]
     Indication: HYPERTENSION
  6. ASPIRIN [Concomitant]
     Indication: HYPERTENSION

REACTIONS (3)
  - EAR INFECTION VIRAL [None]
  - INJECTION SITE PRURITUS [None]
  - VIITH NERVE PARALYSIS [None]
